FAERS Safety Report 8786222 (Version 1)
Quarter: 2012Q4

REPORT INFORMATION
  Report Type: Report from Study
  Country: US (occurrence: US)
  Receive Date: 20120914
  Receipt Date: 20120914
  Transmission Date: 20130627
  Serious: Yes (Death, Hospitalization)
  Sender: FDA-Public Use
  Company Number: US-PFIZER INC-2012223036

PATIENT
  Age: 42 Year
  Sex: Male
  Weight: 81 kg

DRUGS (20)
  1. FLUOROURACIL [Suspect]
     Indication: HEAD AND NECK CANCER
     Dosage: 4100 mg, UNK
     Dates: start: 20110425
  2. CARBOPLATIN [Suspect]
     Indication: HEAD AND NECK CANCER
     Dosage: 750 mg, UNK
     Dates: start: 20110425
  3. BLINDED THERAPY [Suspect]
     Indication: HEAD AND NECK CANCER
     Dosage: 500 mg, UNK
     Dates: start: 20110425, end: 20110531
  4. CEPHALEXIN [Concomitant]
     Dosage: UNK
     Dates: start: 20110516
  5. DEXAMETHASONE [Concomitant]
     Indication: PREMEDICATION
     Dosage: UNK
     Dates: start: 20110516
  6. DIPHENHYDRAMINE [Concomitant]
     Indication: PREMEDICATION
  7. FENTANYL [Concomitant]
     Dosage: UNK
     Dates: start: 20110516
  8. HYDROCODONE BITARTRATE AND ACETAMINOPHEN [Concomitant]
     Dosage: UNK
     Dates: start: 20110516
  9. MAGNESIUM HYDROXIDE [Concomitant]
     Dosage: UNK
     Dates: start: 20110516
  10. METOCLOPRAMIDE HCL [Concomitant]
     Dosage: UNK
     Dates: start: 20110516
  11. ENSURE [Concomitant]
     Dosage: UNK
     Dates: start: 20110516
  12. BENZYL ALCOHOL [Concomitant]
     Dosage: UNK
     Dates: start: 20110516
  13. OMEPRAZOLE [Concomitant]
     Dosage: UNK
     Dates: start: 20110516
  14. ONDANSETRON HYDROCHLORIDE [Concomitant]
  15. POTASSIUM CHLORIDE [Concomitant]
     Dosage: UNK
     Dates: start: 20110502
  16. PROCHLORPERAZINE MALEATE [Concomitant]
     Dosage: UNK
     Dates: start: 20110516
  17. SENNOSIDE [Concomitant]
     Dosage: UNK
     Dates: start: 20110516
  18. DOCUSATE [Concomitant]
  19. HYDROCODONE [Concomitant]
  20. AMBIEN [Concomitant]

REACTIONS (1)
  - Septic shock [Fatal]
